FAERS Safety Report 16083851 (Version 2)
Quarter: 2019Q3

REPORT INFORMATION
  Report Type: Spontaneous
  Country: US (occurrence: US)
  Receive Date: 20190318
  Receipt Date: 20190930
  Transmission Date: 20191004
  Serious: No
  Sender: FDA-Public Use
  Company Number: US-BIOGEN-2019BI00711474

PATIENT
  Sex: Female

DRUGS (1)
  1. TECFIDERA [Suspect]
     Active Substance: DIMETHYL FUMARATE
     Indication: MULTIPLE SCLEROSIS
     Route: 048

REACTIONS (6)
  - Flushing [Unknown]
  - Abdominal pain [Unknown]
  - Abdominal discomfort [Unknown]
  - Product dose omission [Unknown]
  - Depression [Unknown]
  - Gastrooesophageal reflux disease [Unknown]
